FAERS Safety Report 15222625 (Version 2)
Quarter: 2019Q1

REPORT INFORMATION
  Report Type: Spontaneous
  Country: FR (occurrence: FR)
  Receive Date: 20180731
  Receipt Date: 20190326
  Transmission Date: 20190417
  Serious: Yes (Hospitalization)
  Sender: FDA-Public Use
  Company Number: FR-ALLERGAN-1837733US

PATIENT
  Sex: Female

DRUGS (2)
  1. RAMIPRIL. [Suspect]
     Active Substance: RAMIPRIL
     Indication: CONGESTIVE CARDIOMYOPATHY
     Dosage: UNK
     Route: 048
     Dates: start: 201404
  2. NEBIVOLOL HCL - BP [Suspect]
     Active Substance: NEBIVOLOL
     Indication: CONGESTIVE CARDIOMYOPATHY
     Dosage: UNK
     Route: 048
     Dates: start: 201404

REACTIONS (2)
  - Off label use [Not Recovered/Not Resolved]
  - Pancreatitis acute [Not Recovered/Not Resolved]

NARRATIVE: CASE EVENT DATE: 201404
